FAERS Safety Report 4921558-X (Version None)
Quarter: 2006Q1

REPORT INFORMATION
  Report Type: 
  Country: None (occurrence: None)
  Receive Date: 20060221
  Receipt Date: 20060209
  Transmission Date: 20060701
  Serious: Yes (Other)
  Sender: FDA-Public Use
  Company Number: 2006019812

PATIENT
  Age: 67 Year
  Sex: Male
  Weight: 58.9676 kg

DRUGS (6)
  1. SUDAFED (PSEUDOEPHEDRINE) [Suspect]
     Indication: SINUSITIS
     Dosage: 2 TABLETS EVERY FOUR HOURS PRN, ORAL
     Route: 048
     Dates: end: 20060201
  2. WARFARIN SODIUM [Concomitant]
  3. DIAZEPAM [Concomitant]
  4. VICODIN [Concomitant]
  5. RAMIPRIL [Concomitant]
  6. PHENYTOIN SODIUM [Concomitant]

REACTIONS (2)
  - AMPHETAMINES POSITIVE [None]
  - CONVULSION [None]
